FAERS Safety Report 25278577 (Version 1)
Quarter: 2025Q2

REPORT INFORMATION
  Report Type: Spontaneous
  Country: CN (occurrence: CN)
  Receive Date: 20250507
  Receipt Date: 20250507
  Transmission Date: 20250716
  Serious: Yes (Life-Threatening, Hospitalization, Other)
  Sender: PFIZER
  Company Number: CN-PFIZER INC-PV202500052875

PATIENT
  Age: 36 Year
  Sex: Male
  Weight: 58 kg

DRUGS (4)
  1. METHOTREXATE SODIUM [Suspect]
     Active Substance: METHOTREXATE SODIUM
     Indication: Chemotherapy
     Dosage: 6 G, 1X/DAY
     Route: 041
     Dates: start: 20250410, end: 20250410
  2. METHOTREXATE SODIUM [Suspect]
     Active Substance: METHOTREXATE SODIUM
     Indication: Lymphoma
  3. ZUBERITAMAB [Suspect]
     Active Substance: ZUBERITAMAB
     Indication: Chemotherapy
     Dosage: 620 MG, 1X/DAY
     Route: 041
     Dates: start: 20250409, end: 20250409
  4. ZUBERITAMAB [Suspect]
     Active Substance: ZUBERITAMAB
     Indication: Lymphoma

REACTIONS (2)
  - Myelosuppression [Not Recovered/Not Resolved]
  - Off label use [Unknown]

NARRATIVE: CASE EVENT DATE: 20250409
